FAERS Safety Report 8902014 (Version 2)
Quarter: 2013Q1

REPORT INFORMATION
  Report Type: Spontaneous
  Country: DE (occurrence: DE)
  Receive Date: 20121112
  Receipt Date: 20130311
  Transmission Date: 20140127
  Serious: Yes (Hospitalization, Other)
  Sender: FDA-Public Use
  Company Number: DE-ELI_LILLY_AND_COMPANY-DE201203000145

PATIENT
  Age: 60 Year
  Sex: Male

DRUGS (3)
  1. FORSTEO [Suspect]
     Indication: OSTEOPOROSIS
     Dosage: UNK, QD
     Route: 058
     Dates: start: 20120201
  2. CELLCEPT [Concomitant]
  3. PREDNISOLON [Concomitant]

REACTIONS (3)
  - Polymyositis [Unknown]
  - Renal disorder [Not Recovered/Not Resolved]
  - Arthralgia [Not Recovered/Not Resolved]
